FAERS Safety Report 24394724 (Version 1)
Quarter: 2024Q4

REPORT INFORMATION
  Report Type: Spontaneous
  Country: NL (occurrence: NL)
  Receive Date: 20241004
  Receipt Date: 20241004
  Transmission Date: 20250114
  Serious: Yes (Life-Threatening, Hospitalization, Other)
  Sender: TWI PHARMACEUTICALS
  Company Number: NL-TWI PHARMACEUTICAL, INC-20240900144

PATIENT
  Age: 28 Year
  Sex: Female

DRUGS (1)
  1. BUPROPION HYDROCHLORIDE XL [Suspect]
     Active Substance: BUPROPION HYDROCHLORIDE
     Indication: Product used for unknown indication
     Dosage: UNK
     Route: 065

REACTIONS (3)
  - Toxic epidermal necrolysis [Recovering/Resolving]
  - Septic shock [Recovering/Resolving]
  - Respiratory tract oedema [Recovering/Resolving]
